FAERS Safety Report 7794810 (Version 6)
Quarter: 2014Q2

REPORT INFORMATION
  Report Type: Spontaneous
  Country: US (occurrence: US)
  Receive Date: 20110201
  Receipt Date: 20140411
  Transmission Date: 20141212
  Serious: Yes (Hospitalization, Other)
  Sender: FDA-Public Use
  Company Number: US-ASTRAZENECA-2011SE04088

PATIENT
  Age: 59 Year
  Sex: Female

DRUGS (2)
  1. SYMBICORT PMDI [Suspect]
     Indication: CHRONIC OBSTRUCTIVE PULMONARY DISEASE
     Dosage: 160/4.5, TWO PUFFS, DAILY
     Route: 055
     Dates: start: 201403
  2. NEXIUM [Suspect]
     Route: 048

REACTIONS (11)
  - Skin ulcer [Unknown]
  - Localised infection [Unknown]
  - Pneumonia [Unknown]
  - Skin cancer [Unknown]
  - Aphagia [Unknown]
  - Bladder disorder [Unknown]
  - Adverse event [Unknown]
  - Limb injury [Unknown]
  - Dyspnoea [Unknown]
  - Intentional product misuse [Unknown]
  - Drug dose omission [Unknown]
